FAERS Safety Report 16773600 (Version 1)
Quarter: 2019Q3

REPORT INFORMATION
  Report Type: Spontaneous
  Country: CZ (occurrence: CZ)
  Receive Date: 20190904
  Receipt Date: 20190904
  Transmission Date: 20191005
  Serious: Yes (Hospitalization)
  Sender: FDA-Public Use
  Company Number: PHHY2019CZ204013

PATIENT
  Age: 49 Year
  Sex: Male

DRUGS (4)
  1. PREDNISONE. [Concomitant]
     Active Substance: PREDNISONE
     Dosage: 20 MG, QD
  2. PREDNISONE. [Concomitant]
     Active Substance: PREDNISONE
     Dosage: 10 MG, QD
     Route: 065
  3. METHOTREXATE. [Suspect]
     Active Substance: METHOTREXATE
     Indication: GRANULOMA
     Dosage: 10 MG, QW
     Route: 065
     Dates: start: 2013, end: 2013
  4. PREDNISONE. [Concomitant]
     Active Substance: PREDNISONE
     Indication: GRANULOMA
     Dosage: 30 MG, QD
     Route: 065

REACTIONS (5)
  - Product use in unapproved indication [Unknown]
  - Blood alkaline phosphatase increased [Recovering/Resolving]
  - Hypotension [Recovering/Resolving]
  - Anaemia [Recovering/Resolving]
  - Circulatory collapse [Recovering/Resolving]

NARRATIVE: CASE EVENT DATE: 201309
